FAERS Safety Report 13337561 (Version 1)
Quarter: 2017Q1

REPORT INFORMATION
  Report Type: Spontaneous
  Country: SE (occurrence: SE)
  Receive Date: 20170315
  Receipt Date: 20170315
  Transmission Date: 20170428
  Serious: Yes (Disabling)
  Sender: FDA-Public Use
  Company Number: SE-009507513-1703SWE005285

PATIENT
  Sex: Female

DRUGS (3)
  1. KEYTRUDA [Suspect]
     Active Substance: PEMBROLIZUMAB
     Indication: MALIGNANT NEOPLASM PROGRESSION
     Dosage: UNK
     Dates: start: 201604, end: 201606
  2. KEYTRUDA [Suspect]
     Active Substance: PEMBROLIZUMAB
     Dosage: UNK
     Dates: start: 201607, end: 201610
  3. THERAPEUTIC RADIOPHARMACEUTICAL (UNSPECIFIED) [Concomitant]
     Active Substance: UNSPECIFIED INGREDIENT
     Indication: METASTASES TO LUNG
     Dosage: UNK
     Dates: start: 201606

REACTIONS (4)
  - Neurological decompensation [Not Recovered/Not Resolved]
  - Off label use [Unknown]
  - Hypokinesia [Not Recovered/Not Resolved]
  - Respiratory symptom [Unknown]

NARRATIVE: CASE EVENT DATE: 201604
